FAERS Safety Report 14120882 (Version 3)
Quarter: 2020Q1

REPORT INFORMATION
  Report Type: Report from Study
  Country: None (occurrence: US)
  Receive Date: 20171024
  Receipt Date: 20200210
  Transmission Date: 20200409
  Serious: Yes (Other)
  Sender: FDA-Public Use
  Company Number: US-ABBVIE-17K-163-2029925-00

PATIENT
  Sex: Male

DRUGS (4)
  1. PREDNISONE. [Concomitant]
     Active Substance: PREDNISONE
     Indication: CROHN^S DISEASE
  2. HUMIRA [Suspect]
     Active Substance: ADALIMUMAB
     Indication: CROHN^S DISEASE
     Route: 058
  3. IMODINE [Concomitant]
     Active Substance: LOPERAMIDE HYDROCHLORIDE
     Indication: DIARRHOEA
  4. ALBUTEROL. [Concomitant]
     Active Substance: ALBUTEROL
     Indication: ASTHENIA

REACTIONS (7)
  - Oesophageal dilation procedure [Unknown]
  - Bladder cancer [Unknown]
  - Throat tightness [Recovered/Resolved]
  - Basosquamous carcinoma [Recovered/Resolved]
  - Dysphagia [Recovered/Resolved]
  - Bladder neoplasm [Recovered/Resolved]
  - Urinary tract disorder [Unknown]

NARRATIVE: CASE EVENT DATE: 2019
